FAERS Safety Report 21541087 (Version 1)
Quarter: 2022Q4

REPORT INFORMATION
  Report Type: Spontaneous
  Country: ES (occurrence: ES)
  Receive Date: 20221102
  Receipt Date: 20221102
  Transmission Date: 20230113
  Serious: Yes (Other)
  Sender: FDA-Public Use
  Company Number: None

PATIENT
  Age: 76 Year
  Sex: Male

DRUGS (6)
  1. CLARITHROMYCIN [Interacting]
     Active Substance: CLARITHROMYCIN
     Indication: Bronchitis
     Dosage: UNK (COMP C/12 H)
     Route: 048
     Dates: start: 20220928, end: 20220929
  2. AMLODIPINE BESYLATE\HYDROCHLOROTHIAZIDE\OLMESARTAN MEDOXOMIL [Interacting]
     Active Substance: AMLODIPINE BESYLATE\HYDROCHLOROTHIAZIDE\OLMESARTAN MEDOXOMIL
     Indication: Arteriosclerosis
     Dosage: UNK (1.0 COMP C/24 H) (40 MG/5 MG/25 MG COMPRIMIDOS RECUBIERTOS CON PELICULA, 28 COMPRIMIDOS)
     Route: 048
     Dates: start: 20131210
  3. METFORMIN HYDROCHLORIDE\SITAGLIPTIN PHOSPHATE [Concomitant]
     Active Substance: METFORMIN HYDROCHLORIDE\SITAGLIPTIN PHOSPHATE
     Indication: Type 2 diabetes mellitus
     Dosage: UNK (1.0 COMP DECE)
     Route: 048
     Dates: start: 20151127
  4. PANTOPRAZOLE SODIUM [Concomitant]
     Active Substance: PANTOPRAZOLE SODIUM
     Indication: Arteriosclerosis
     Dosage: UNK (20.0 MG DE)
     Route: 048
     Dates: start: 20210513
  5. TORSEMIDE [Concomitant]
     Active Substance: TORSEMIDE
     Indication: Hypertension
     Dosage: UNK (5.0 MG DECO) (COMPRIMIDOS EFG, 30 COMPRIMIDOS)
     Route: 048
     Dates: start: 20220708
  6. SIMVASTATINA CINFA [Concomitant]
     Indication: Hyperlipidaemia
     Dosage: UNK (20.0 MG CE)
     Route: 048
     Dates: start: 20150203

REACTIONS (2)
  - Syncope [Recovered/Resolved]
  - Hypotension [Recovered/Resolved]

NARRATIVE: CASE EVENT DATE: 20220928
